FAERS Safety Report 7577606-4 (Version None)
Quarter: 2011Q2

REPORT INFORMATION
  Report Type: 
  Country: None (occurrence: None)
  Receive Date: 20110628
  Receipt Date: 20110120
  Transmission Date: 20111010
  Serious: No
  Sender: FDA-Public Use
  Company Number: US-KINGPHARMUSA00001-K201100089

PATIENT
  Sex: Male

DRUGS (3)
  1. BICILLIN L-A [Suspect]
     Indication: SYPHILIS
     Dosage: 1.2 MILLION UNIT, SINGLE
     Route: 030
     Dates: start: 20110117, end: 20110117
  2. BICILLIN L-A [Suspect]
     Dosage: 2.4 MILLION UNIT, SINGLE
     Route: 030
     Dates: start: 20101231, end: 20101231
  3. BICILLIN L-A [Suspect]
     Dosage: 2.4 MILLION UNIT, SINGLE
     Route: 030
     Dates: start: 20110110, end: 20110110

REACTIONS (2)
  - NO ADVERSE EVENT [None]
  - UNDERDOSE [None]
